FAERS Safety Report 9602706 (Version 1)
Quarter: 2013Q4

REPORT INFORMATION
  Report Type: Spontaneous
  Country: US (occurrence: US)
  Receive Date: 20131007
  Receipt Date: 20131007
  Transmission Date: 20140711
  Serious: No
  Sender: FDA-Public Use
  Company Number: US-PFIZER INC-2013281828

PATIENT
  Age: 62 Year
  Sex: Female

DRUGS (3)
  1. IBUPROFEN [Suspect]
     Indication: MIGRAINE
     Dosage: UNK
     Route: 065
  2. TYLENOL [Suspect]
     Indication: MIGRAINE
     Dosage: UNK
     Route: 065
  3. ASPIRIN [Suspect]
     Indication: MIGRAINE
     Dosage: UNK
     Route: 065

REACTIONS (1)
  - Drug ineffective [Unknown]
